FAERS Safety Report 9317265 (Version 1)
Quarter: 2013Q2

REPORT INFORMATION
  Report Type: Spontaneous
  Country: ES (occurrence: ES)
  Receive Date: 20130530
  Receipt Date: 20130530
  Transmission Date: 20140414
  Serious: Yes (Other)
  Sender: FDA-Public Use
  Company Number: ES-009507513-1305ESP010408

PATIENT
  Age: 3 Year
  Sex: Male
  Weight: 22 kg

DRUGS (1)
  1. SINGULAIR 4 MG GRANULADO [Suspect]
     Indication: ASTHMA
     Dosage: 1 EVERY 24 HOURS
     Route: 048
     Dates: start: 20130402

REACTIONS (1)
  - Onychomadesis [Recovered/Resolved]
